FAERS Safety Report 24141234 (Version 1)
Quarter: 2024Q3

REPORT INFORMATION
  Report Type: Spontaneous
  Country: NL (occurrence: NL)
  Receive Date: 20240726
  Receipt Date: 20240726
  Transmission Date: 20241016
  Serious: Yes (Hospitalization)
  Sender: TEVA
  Company Number: None

PATIENT
  Age: 74 Year
  Sex: Male
  Weight: 94 kg

DRUGS (1)
  1. CISPLATIN [Suspect]
     Active Substance: CISPLATIN
     Indication: Bladder transitional cell carcinoma
     Dosage: 150 MG 1 X PER DAY IN NACL 0.9% 1000ML, BRAND NAME NOT SPECIFIED
     Route: 065
     Dates: start: 20240517, end: 20240518

REACTIONS (1)
  - Acute kidney injury [Not Recovered/Not Resolved]
